FAERS Safety Report 17288215 (Version 1)
Quarter: 2020Q1

REPORT INFORMATION
  Report Type: Spontaneous
  Country: US (occurrence: US)
  Receive Date: 20200120
  Receipt Date: 20200120
  Transmission Date: 20200409
  Serious: No
  Sender: FDA-Public Use
  Company Number: US-ASTRAZENECA-2020SE08192

PATIENT

DRUGS (1)
  1. PRILOSEC OTC [Suspect]
     Active Substance: OMEPRAZOLE MAGNESIUM
     Dosage: UNKNOWN AMOUNT AND FREQUENCY FOR 3 DAYS
     Route: 048
     Dates: start: 20191227

REACTIONS (2)
  - Chromaturia [Unknown]
  - Pruritus [Unknown]

NARRATIVE: CASE EVENT DATE: 201912
